FAERS Safety Report 25853872 (Version 3)
Quarter: 2025Q4

REPORT INFORMATION
  Report Type: Report from Study
  Country: US (occurrence: US)
  Receive Date: 20250926
  Receipt Date: 20251113
  Transmission Date: 20260117
  Serious: Yes (Other)
  Sender: MALLINCKRODT
  Company Number: US-MALLINCKRODT-MNK202505958

PATIENT
  Sex: Female

DRUGS (4)
  1. CORTICOTROPIN [Suspect]
     Active Substance: CORTICOTROPIN
     Indication: Multiple sclerosis
     Dosage: 80 UNITS
     Route: 058
  2. CORTICOTROPIN [Suspect]
     Active Substance: CORTICOTROPIN
     Dosage: UNKNOWN
     Dates: start: 20251013, end: 20251020
  3. TYSABRI [Concomitant]
     Active Substance: NATALIZUMAB
     Dosage: UNKNOWN
  4. UBLITUXIMAB [Concomitant]
     Active Substance: UBLITUXIMAB
     Dosage: UNKNOWN

REACTIONS (5)
  - Multiple sclerosis relapse [Recovering/Resolving]
  - Blood immunoglobulin G decreased [Unknown]
  - Immunodeficiency [Unknown]
  - Pruritus [Unknown]
  - Osteoporosis [Unknown]
